FAERS Safety Report 7543874-8 (Version None)
Quarter: 2011Q2

REPORT INFORMATION
  Report Type: 
  Country: None (occurrence: None)
  Receive Date: 20110613
  Receipt Date: 20110606
  Transmission Date: 20111010
  Serious: Yes (Hospitalization)
  Sender: FDA-Public Use
  Company Number: FR-ROCHE-777364

PATIENT
  Sex: Female

DRUGS (7)
  1. ACUPAN [Suspect]
     Indication: PAIN
     Route: 042
     Dates: start: 20110425, end: 20110428
  2. ROCEPHIN [Suspect]
     Route: 042
     Dates: start: 20110426, end: 20110428
  3. FUNGIZONE [Suspect]
     Route: 048
     Dates: start: 20110421, end: 20110429
  4. GENTAMICINE SULFATE [Suspect]
     Route: 042
  5. COLCHICINE [Suspect]
     Route: 048
     Dates: end: 20110421
  6. OFLOXACIN [Suspect]
     Route: 048
     Dates: start: 20110424, end: 20110426
  7. GENTAMICINE SULFATE [Suspect]
     Route: 042
     Dates: start: 20110426, end: 20110429

REACTIONS (5)
  - EPIDERMAL NECROSIS [None]
  - CONJUNCTIVITIS [None]
  - STEVENS-JOHNSON SYNDROME [None]
  - MOUTH ULCERATION [None]
  - ERYTHEMA [None]
